FAERS Safety Report 4428226-1 (Version None)
Quarter: 2004Q3

REPORT INFORMATION
  Report Type: 
  Country: None (occurrence: None)
  Receive Date: 20040726
  Receipt Date: 20040414
  Transmission Date: 20050211
  Serious: No
  Sender: FDA-Public Use
  Company Number: USA040362396

PATIENT
  Age: 35 Year
  Sex: Female
  Weight: 77 kg

DRUGS (14)
  1. FORTEO [Suspect]
     Indication: OSTEOPOROSIS
     Dosage: 20 UG/ 1 DAY
     Dates: start: 20040316, end: 20040317
  2. EVISTA [Suspect]
  3. PREVACID [Concomitant]
  4. HYDROCHLOROTHIAZIDE [Concomitant]
  5. LISINOPRIL [Concomitant]
  6. AUGMENTIN '125' [Concomitant]
  7. ALLEGRA [Concomitant]
  8. MEDROL [Concomitant]
  9. RHINOCORT [Concomitant]
  10. ADVAIR DISKUS 100/50 [Concomitant]
  11. UNIPHYL [Concomitant]
  12. LAMISIL [Concomitant]
  13. ALBUTEROL [Concomitant]
  14. POTASSIUM [Concomitant]

REACTIONS (5)
  - HEADACHE [None]
  - INJECTION SITE DISCOMFORT [None]
  - INJECTION SITE ERYTHEMA [None]
  - INJECTION SITE HAEMORRHAGE [None]
  - PRURITUS [None]
